FAERS Safety Report 5685359-X (Version None)
Quarter: 2008Q1

REPORT INFORMATION
  Report Type: 
  Country: None (occurrence: None)
  Receive Date: 20080328
  Receipt Date: 20080320
  Transmission Date: 20080703
  Serious: Yes (Other)
  Sender: FDA-Public Use
  Company Number: US-PFIZER INC-2008025339

PATIENT

DRUGS (3)
  1. LIPITOR [Suspect]
  2. LESCOL [Suspect]
  3. ZOCOR [Suspect]

REACTIONS (1)
  - AMYLOIDOSIS [None]
